FAERS Safety Report 9054401 (Version 1)
Quarter: 2013Q1

REPORT INFORMATION
  Report Type: Spontaneous
  Country: US (occurrence: US)
  Receive Date: 20130208
  Receipt Date: 20130208
  Transmission Date: 20140127
  Serious: No
  Sender: FDA-Public Use
  Company Number: US-GLAXOSMITHKLINE-A1000596A

PATIENT
  Sex: 0

DRUGS (2)
  1. PAROXETINE HYDROCHLORIDE [Suspect]
     Indication: PRODUCT USED FOR UNKNOWN INDICATION
     Dosage: 37.5MG UNKNOWN
     Route: 048
     Dates: start: 20120919
  2. BUPROPION HCL [Suspect]
     Indication: PRODUCT USED FOR UNKNOWN INDICATION
     Route: 048

REACTIONS (6)
  - Depression [Unknown]
  - Anxiety [Unknown]
  - Hyperhidrosis [Unknown]
  - Insomnia [Unknown]
  - Drug ineffective [Unknown]
  - Product quality issue [Unknown]
